FAERS Safety Report 22845746 (Version 2)
Quarter: 2023Q4

REPORT INFORMATION
  Report Type: Spontaneous
  Country: US (occurrence: US)
  Receive Date: 20230821
  Receipt Date: 20231122
  Transmission Date: 20240109
  Serious: No
  Sender: FDA-Public Use
  Company Number: US-AVADEL CNS PHARMACEUTICALS, LLC-2023AVA00019

PATIENT
  Sex: Female

DRUGS (17)
  1. LUMRYZ [Suspect]
     Active Substance: SODIUM OXYBATE
     Indication: Narcolepsy
     Dosage: MIX AND TAKE THE CONTENTS OF ONE PACKET(4.5 G) WITH WATER IN PROVIDED MIXING UP, 1X/DAY AT BEDTIME
     Route: 048
     Dates: start: 20230714, end: 20230720
  2. LUMRYZ [Suspect]
     Active Substance: SODIUM OXYBATE
     Indication: Narcolepsy
     Dosage: MIX AND TAKE THE CONTENTS OF ONE PACKET (6 G) WITH WATER IN PROVIDED MICING CUP, 1X/DAY AT BEDTIME
     Route: 048
     Dates: start: 20230721, end: 20230727
  3. LUMRYZ [Suspect]
     Active Substance: SODIUM OXYBATE
     Indication: Narcolepsy
     Dosage: MIX AND TAKE THE CONTENTS OF ONE PACKET (7.5 G) WITH WATER IN PROVIDED MIXING CUP, 1X/DAY AT BEDTIME
     Route: 048
     Dates: start: 20230728, end: 20230804
  4. LUMRYZ [Suspect]
     Active Substance: SODIUM OXYBATE
     Indication: Narcolepsy
     Dosage: MIX AND TAKE THE CONTENTS OF ONE PACKET (9 G) WITH WATER IN PROVIDED MIXING CUP, 1X/DAY AT BEDTIME F
     Route: 048
     Dates: start: 20230805, end: 202308
  5. LUMRYZ [Suspect]
     Active Substance: SODIUM OXYBATE
     Dosage: NOT CONTINUOUS
     Dates: start: 202308
  6. REMERON [Concomitant]
     Active Substance: MIRTAZAPINE
     Dosage: 30 MG, 1X/DAY
  7. METOPROLOL SUCCINATE [Concomitant]
     Active Substance: METOPROLOL SUCCINATE
  8. VALSARTAN [Concomitant]
     Active Substance: VALSARTAN
     Dosage: 70 MG, 1X/DAY
  9. AMLODIPINE BESYLATE [Concomitant]
     Active Substance: AMLODIPINE BESYLATE
     Dosage: 5 MG OR 10 MG, 1X/DAY
  10. VYVANSE [Concomitant]
     Active Substance: LISDEXAMFETAMINE DIMESYLATE
  11. DEXTROAMPHETAMINE [Concomitant]
     Active Substance: DEXTROAMPHETAMINE
  12. DIAZEPAM [Concomitant]
     Active Substance: DIAZEPAM
  13. PANTOPRAZOLE SODIUM [Concomitant]
     Active Substance: PANTOPRAZOLE SODIUM
  14. AMPHETAMINE\DEXTROAMPHETAMINE [Concomitant]
     Active Substance: AMPHETAMINE\DEXTROAMPHETAMINE
  15. METFORMIN [Concomitant]
     Active Substance: METFORMIN HYDROCHLORIDE
     Dosage: 100 MG, 1X/DAY
  16. ALKA-SELTZER [Concomitant]
     Active Substance: ANHYDROUS CITRIC ACID\ASPIRIN\SODIUM BICARBONATE
  17. PEPTO-BISMOL [Concomitant]
     Active Substance: BISMUTH SUBSALICYLATE

REACTIONS (18)
  - Middle insomnia [Recovering/Resolving]
  - Feeling abnormal [Not Recovered/Not Resolved]
  - Night sweats [Not Recovered/Not Resolved]
  - Malaise [Not Recovered/Not Resolved]
  - Aphasia [Not Recovered/Not Resolved]
  - Thinking abnormal [Not Recovered/Not Resolved]
  - Fatigue [Not Recovered/Not Resolved]
  - Intrusive thoughts [Not Recovered/Not Resolved]
  - Feeling of despair [Unknown]
  - Feeling jittery [Recovering/Resolving]
  - Brain fog [Not Recovered/Not Resolved]
  - Depressed mood [Unknown]
  - Nocturia [Not Recovered/Not Resolved]
  - Nausea [Not Recovered/Not Resolved]
  - Anxiety [Not Recovered/Not Resolved]
  - Dizziness [Not Recovered/Not Resolved]
  - Somnolence [Recovered/Resolved]
  - Vomiting [Unknown]

NARRATIVE: CASE EVENT DATE: 20230101
